FAERS Safety Report 9107443 (Version 1)
Quarter: 2013Q1

REPORT INFORMATION
  Report Type: Other
  Country: GB (occurrence: GB)
  Receive Date: 20130221
  Receipt Date: 20130221
  Transmission Date: 20140127
  Serious: Yes (Disabling, Other)
  Sender: FDA-Public Use
  Company Number: GB-WATSON-2013-02558

PATIENT
  Age: 59 Year
  Sex: Male
  Weight: 92.5 kg

DRUGS (1)
  1. AMLODIPINE (UNKNOWN) [Suspect]
     Indication: HYPERTENSION
     Dosage: 10 MG, DAILY
     Route: 048
     Dates: start: 20060720, end: 20130125

REACTIONS (11)
  - Dizziness [Recovering/Resolving]
  - Back pain [Recovered/Resolved]
  - Arthritis [Recovering/Resolving]
  - Depressed mood [Recovering/Resolving]
  - Agitation [Recovering/Resolving]
  - Mood swings [Unknown]
  - Visual impairment [Recovering/Resolving]
  - Hypoaesthesia [Recovering/Resolving]
  - Migraine [Unknown]
  - Anger [Recovering/Resolving]
  - Feeling abnormal [Recovered/Resolved]
